FAERS Safety Report 21442671 (Version 9)
Quarter: 2024Q2

REPORT INFORMATION
  Report Type: Report from Study
  Country: US (occurrence: US)
  Receive Date: 20221012
  Receipt Date: 20240607
  Transmission Date: 20240716
  Serious: Yes (Other)
  Sender: FDA-Public Use
  Company Number: US-ACADIA PHARMACEUTICALS INC.-ACA-2022-PIM-002854

PATIENT
  Age: 62 Year
  Sex: Female

DRUGS (4)
  1. NUPLAZID [Suspect]
     Active Substance: PIMAVANSERIN TARTRATE
     Indication: Parkinson^s disease psychosis
     Dosage: 34 MILLIGRAM, QD
     Route: 048
     Dates: start: 20220723
  2. NUPLAZID [Suspect]
     Active Substance: PIMAVANSERIN TARTRATE
     Indication: Psychotic disorder
  3. NUPLAZID [Suspect]
     Active Substance: PIMAVANSERIN TARTRATE
     Indication: Hallucination
  4. SINEMET [Concomitant]
     Active Substance: CARBIDOPA\LEVODOPA

REACTIONS (36)
  - Suicidal ideation [Recovered/Resolved]
  - Narcolepsy [Unknown]
  - Suicidal ideation [Unknown]
  - Dizziness [Not Recovered/Not Resolved]
  - Fatigue [Not Recovered/Not Resolved]
  - Insomnia [Not Recovered/Not Resolved]
  - Depression [Recovered/Resolved]
  - Balance disorder [Recovering/Resolving]
  - Muscle spasms [Recovering/Resolving]
  - Blood pressure increased [Unknown]
  - Dizziness [Unknown]
  - Depression [Unknown]
  - Lethargy [Unknown]
  - Anger [Unknown]
  - Body temperature fluctuation [Unknown]
  - Functional gastrointestinal disorder [Unknown]
  - Hypoaesthesia [Unknown]
  - Drooling [Unknown]
  - Tongue thrust [Unknown]
  - Affect lability [Unknown]
  - COVID-19 [Unknown]
  - Urinary tract infection [Unknown]
  - Urinary tract infection [Recovering/Resolving]
  - Dyspepsia [Unknown]
  - Depression [Unknown]
  - Diarrhoea [Unknown]
  - Abdominal pain upper [Recovered/Resolved]
  - Dyspepsia [Recovered/Resolved]
  - Constipation [Not Recovered/Not Resolved]
  - Swollen tongue [Not Recovered/Not Resolved]
  - Throat tightness [Not Recovered/Not Resolved]
  - Swollen tongue [Unknown]
  - Throat tightness [Unknown]
  - Somnolence [Unknown]
  - Hypersensitivity [Unknown]
  - Gait disturbance [Unknown]

NARRATIVE: CASE EVENT DATE: 20221110
